FAERS Safety Report 4455991-X (Version None)
Quarter: 2004Q3

REPORT INFORMATION
  Report Type: 
  Country: None (occurrence: None)
  Receive Date: 20040830
  Receipt Date: 20040513
  Transmission Date: 20050211
  Serious: No
  Sender: FDA-Public Use
  Company Number: 206506

PATIENT
  Age: 34 Year
  Sex: Female
  Weight: 64 kg

DRUGS (6)
  1. XOLAIR [Suspect]
     Indication: ASTHMA
     Dosage: 375 MG, Q2W, SUBCUTANEOUS
     Route: 058
     Dates: start: 20040318
  2. ALBUTEROL (ALBUTEROL SULFATE) [Concomitant]
  3. ADVAIR DISKUS [Concomitant]
  4. ALLEGRA [Concomitant]
  5. NASACORT AQ (TRIAMCINOLONE ACETONIDE) [Concomitant]
  6. LOESTRIN (ETHINYL ESTRADIOL, NORETHINDRONE ACETATE) [Concomitant]

REACTIONS (2)
  - DIZZINESS [None]
  - VERTIGO [None]
